FAERS Safety Report 5146093-8 (Version None)
Quarter: 2006Q4

REPORT INFORMATION
  Report Type: 
  Country: None (occurrence: None)
  Receive Date: 20061102
  Receipt Date: 20061019
  Transmission Date: 20070319
  Serious: Yes (Other)
  Sender: FDA-Public Use
  Company Number: 2006131302

PATIENT
  Sex: Male

DRUGS (2)
  1. CELEBREX [Suspect]
     Indication: RHEUMATOID ARTHRITIS
     Dosage: 200 MG (200 MG, 1 IN 1 D)
  2. ALL OTHER THERAPEUTIC PRODUCTS (ALL OTHER THERAPEUTIC PRODUCTS) [Concomitant]

REACTIONS (8)
  - GINGIVAL PAIN [None]
  - GINGIVAL ULCERATION [None]
  - HEAT STROKE [None]
  - INSOMNIA [None]
  - LIP PAIN [None]
  - LIP SWELLING [None]
  - LIP ULCERATION [None]
  - RASH [None]
